FAERS Safety Report 6524230-8 (Version None)
Quarter: 2009Q4

REPORT INFORMATION
  Report Type: 
  Country: None (occurrence: None)
  Receive Date: 20091231
  Receipt Date: 20091222
  Transmission Date: 20100525
  Serious: Yes (Death)
  Sender: FDA-Public Use
  Company Number: JP-ABBOTT-09P-087-0611138-00

PATIENT
  Sex: Female

DRUGS (4)
  1. LUPRON DEPOT [Suspect]
     Indication: UTERINE LEIOMYOMA
     Route: 058
     Dates: start: 20090608, end: 20090608
  2. LUPRON DEPOT [Suspect]
     Indication: PREMEDICATION
  3. TOUKISHAKUYAKUSAN [Concomitant]
     Indication: MENOPAUSAL SYMPTOMS
     Route: 048
     Dates: start: 20090601
  4. IRON PREPARATIONS [Concomitant]
     Indication: DRUG USE FOR UNKNOWN INDICATION
     Route: 065

REACTIONS (1)
  - COMPLETED SUICIDE [None]
